FAERS Safety Report 11186574 (Version 1)
Quarter: 2015Q2

REPORT INFORMATION
  Report Type: Spontaneous
  Country: US (occurrence: US)
  Receive Date: 20150613
  Receipt Date: 20150613
  Transmission Date: 20150821
  Serious: Yes (Other)
  Sender: FDA-Public Use
  Company Number: PHEH2015US011062

PATIENT
  Age: 79 Year
  Sex: Female
  Weight: 68 kg

DRUGS (13)
  1. MOXIFLOXACIN [Suspect]
     Active Substance: MOXIFLOXACIN
     Indication: OSTEOMYELITIS
     Dosage: 400 MG, QD (1 DF, QD)
     Route: 065
  2. MOXIFLOXACIN [Suspect]
     Active Substance: MOXIFLOXACIN
     Indication: ORAL INFECTION
  3. CRESTOR [Concomitant]
     Active Substance: ROSUVASTATIN CALCIUM
     Indication: BLOOD CHOLESTEROL INCREASED
     Dosage: 10 MG, QD
     Route: 065
  4. ADVIL [Suspect]
     Active Substance: IBUPROFEN
     Indication: PAIN IN JAW
     Dosage: 400 MG, Q4H (2 DF, Q4H)
     Route: 048
     Dates: start: 20150521
  5. SYNTHROID [Concomitant]
     Active Substance: LEVOTHYROXINE SODIUM
     Indication: THYROID DISORDER
     Dosage: 75 UG, QD
     Route: 065
  6. ARIMIDEX [Concomitant]
     Active Substance: ANASTROZOLE
     Indication: NEOPLASM MALIGNANT
     Dosage: 1 MG, QD
     Route: 065
  7. CARVEDILOL. [Concomitant]
     Active Substance: CARVEDILOL
     Indication: CARDIAC DISORDER
     Dosage: 25 MG, BID (1 DF IN THE MORNING AND 1DF IN THE NIGHT)
     Route: 065
  8. ACETAMINOPHEN AND CODEINE [Suspect]
     Active Substance: ACETAMINOPHEN\CODEINE PHOSPHATE
     Indication: PAIN
     Dosage: 1 DF, PRN (EVERY 4 TO 6 HOURS)
     Route: 065
  9. ZOMETA [Suspect]
     Active Substance: ZOLEDRONIC ACID
     Indication: NEOPLASM MALIGNANT
     Dosage: EVERY THREE MONTHS
     Route: 041
  10. ZOMETA [Suspect]
     Active Substance: ZOLEDRONIC ACID
     Indication: OSTEOPOROSIS
  11. MOXIFLOXACIN [Suspect]
     Active Substance: MOXIFLOXACIN
     Indication: GINGIVITIS
  12. ACIPHEX [Concomitant]
     Active Substance: RABEPRAZOLE SODIUM
     Indication: GASTRIC DISORDER
     Dosage: 20 MG, QD
     Route: 065
  13. BAYER ASPIRIN [Concomitant]
     Active Substance: ASPIRIN
     Indication: PRODUCT USED FOR UNKNOWN INDICATION
     Dosage: 81 MG, QD
     Route: 065

REACTIONS (7)
  - Exposed bone in jaw [Unknown]
  - Off label use [Unknown]
  - Osteomyelitis [Unknown]
  - Oral infection [Not Recovered/Not Resolved]
  - Joint swelling [Not Recovered/Not Resolved]
  - Gingivitis [Not Recovered/Not Resolved]
  - Pain in jaw [Not Recovered/Not Resolved]

NARRATIVE: CASE EVENT DATE: 201407
